FAERS Safety Report 8803714 (Version 1)
Quarter: 2012Q4

REPORT INFORMATION
  Report Type: 
  Country: CN (occurrence: CN)
  Receive Date: 20120924
  Receipt Date: 20120924
  Transmission Date: 20130627
  Serious: Yes (Other)
  Sender: FDA-Public Use
  Company Number: CN-ABBOTT-12P-035-0985395-00

PATIENT
  Age: 6 Year
  Sex: Male

DRUGS (3)
  1. DEPAKINE [Suspect]
     Indication: EPILEPSY
     Dosage: 0.5 dosage form; Daily
     Route: 048
     Dates: start: 20120611, end: 20120823
  2. DEPAKINE [Suspect]
     Dosage: 1 dosage form; daily
     Route: 048
     Dates: start: 20120824
  3. VITAMIN B6 [Concomitant]
     Indication: PRODUCT USED FOR UNKNOWN INDICATION
     Dates: start: 20120611

REACTIONS (6)
  - Eye movement disorder [Recovered/Resolved]
  - Trismus [Recovered/Resolved]
  - Epilepsy [Recovered/Resolved]
  - Tremor [Recovered/Resolved]
  - Eye disorder [Unknown]
  - Hypokinesia [Unknown]
